FAERS Safety Report 23554665 (Version 1)
Quarter: 2024Q1

REPORT INFORMATION
  Report Type: Report from Study
  Country: US (occurrence: US)
  Receive Date: 20240222
  Receipt Date: 20240222
  Transmission Date: 20240410
  Serious: No
  Sender: FDA-Public Use
  Company Number: US-BIOGEN-2024BI01251149

PATIENT
  Age: 34 Year
  Sex: Female

DRUGS (1)
  1. ZURZUVAE [Suspect]
     Active Substance: ZURANOLONE
     Indication: Perinatal depression
     Route: 050
     Dates: start: 20240214, end: 20240218

REACTIONS (3)
  - Muscular weakness [Unknown]
  - Tremor [Unknown]
  - Somnolence [Unknown]

NARRATIVE: CASE EVENT DATE: 20240214
